FAERS Safety Report 4456187-8 (Version None)
Quarter: 2004Q3

REPORT INFORMATION
  Report Type: 
  Country: None (occurrence: None)
  Receive Date: 20040920
  Receipt Date: 20040907
  Transmission Date: 20050211
  Serious: Yes (Life-Threatening, Hospitalization)
  Sender: FDA-Public Use
  Company Number: 04P-144-0272738-00

PATIENT
  Age: 72 Year
  Sex: Male

DRUGS (1)
  1. MAVIK [Suspect]
     Indication: CARDIAC FAILURE
     Dosage: 0.5 MG, 1 IN 1 D; PER ORAL
     Route: 048
     Dates: start: 20040301, end: 20040422

REACTIONS (4)
  - ASTHENIA [None]
  - CHOLURIA [None]
  - HEPATITIS CHOLESTATIC [None]
  - NAUSEA [None]
